FAERS Safety Report 4842369-X (Version None)
Quarter: 2005Q4

REPORT INFORMATION
  Report Type: 
  Country: None (occurrence: None)
  Receive Date: 20051125
  Receipt Date: 20051121
  Transmission Date: 20060501
  Serious: Yes (Death)
  Sender: FDA-Public Use
  Company Number: IT-2005-024415

PATIENT
  Age: 81 Year
  Sex: Male

DRUGS (1)
  1. IOPROMIDE (IOPROMIDE) SOLUTION [Suspect]
     Dosage: 100 ML, 1 DOSE, INTRAVENOUS
     Route: 042
     Dates: start: 20051115, end: 20051115

REACTIONS (2)
  - CARDIAC ARREST [None]
  - DYSPNOEA [None]
